FAERS Safety Report 7902588-2 (Version None)
Quarter: 2011Q4

REPORT INFORMATION
  Report Type: 
  Country: None (occurrence: None)
  Receive Date: 20111108
  Receipt Date: 20111024
  Transmission Date: 20120403
  Serious: Yes (Hospitalization)
  Sender: FDA-Public Use
  Company Number: AU-WATSON-2011-18073

PATIENT
  Age: 47 Year
  Sex: Female

DRUGS (3)
  1. DIAZEPAM [Suspect]
     Indication: INTENTIONAL OVERDOSE
     Dosage: 250 MG, SINGLE
  2. ZIPRASIDONE HYDROCHLORIDE [Suspect]
     Indication: OVERDOSE
  3. PROPRANOLOL [Suspect]
     Indication: PRODUCT USED FOR UNKNOWN INDICATION
     Dosage: 40 MG, TID

REACTIONS (3)
  - ELECTROCARDIOGRAM QT PROLONGED [None]
  - OVERDOSE [None]
  - SINUS BRADYCARDIA [None]
